FAERS Safety Report 11475213 (Version 1)
Quarter: 2015Q3

REPORT INFORMATION
  Report Type: Spontaneous
  Country: US (occurrence: None)
  Receive Date: 20150908
  Receipt Date: 20150908
  Transmission Date: 20151125
  Serious: Yes (Other)
  Sender: FDA-Public Use
  Company Number: None

PATIENT
  Age: 35 Year
  Sex: Female
  Weight: 90.72 kg

DRUGS (3)
  1. ADDERAL XR [Concomitant]
  2. AMPHETAMINE [Suspect]
     Active Substance: AMPHETAMINE
     Indication: ATTENTION DEFICIT/HYPERACTIVITY DISORDER
     Dosage: ONCE DAILY 30 MG ER?ONCE DAILY?TAKEN BY MOUTH?FEW DAYS TO
     Route: 048
  3. LEXAPRO [Concomitant]
     Active Substance: ESCITALOPRAM OXALATE

REACTIONS (6)
  - Product quality issue [None]
  - Lethargy [None]
  - Product formulation issue [None]
  - Product substitution issue [None]
  - Sleep disorder [None]
  - Drug ineffective [None]

NARRATIVE: CASE EVENT DATE: 20150905
